FAERS Safety Report 12084035 (Version 1)
Quarter: 2016Q1

REPORT INFORMATION
  Report Type: Spontaneous
  Country: US (occurrence: None)
  Receive Date: 20160216
  Receipt Date: 20160216
  Transmission Date: 20160526
  Serious: Yes (Other)
  Sender: FDA-Public Use
  Company Number: None

PATIENT
  Age: 68 Year
  Sex: Male
  Weight: 99.79 kg

DRUGS (10)
  1. LOSARTAN. [Concomitant]
     Active Substance: LOSARTAN
  2. OMEGA 3 [Concomitant]
     Active Substance: OMEGA-3 FATTY ACIDS
  3. METATOPEROL [Concomitant]
  4. OMNEPRAZOLE MITRAL VALVE [Concomitant]
  5. TAMSULOSIN [Suspect]
     Active Substance: TAMSULOSIN
     Indication: NEPHROLITHIASIS
     Dosage: 1 AT BEDTIME, TAKEN BY MOUTH
     Route: 048
     Dates: start: 20160201, end: 20160206
  6. CENTRUM VITAMIN FOR MEN [Concomitant]
  7. SIMVASTATIN. [Concomitant]
     Active Substance: SIMVASTATIN
  8. PREGNASONE [Concomitant]
  9. WARFARIN [Concomitant]
     Active Substance: WARFARIN
  10. BAYER ASPIRIN [Concomitant]
     Active Substance: ASPIRIN

REACTIONS (6)
  - Dysphonia [None]
  - Oedema peripheral [None]
  - Swelling face [None]
  - Nasal congestion [None]
  - Dyspnoea [None]
  - Cough [None]

NARRATIVE: CASE EVENT DATE: 20160205
